FAERS Safety Report 13940488 (Version 1)
Quarter: 2017Q3

REPORT INFORMATION
  Report Type: Spontaneous
  Country: US (occurrence: US)
  Receive Date: 20170906
  Receipt Date: 20170906
  Transmission Date: 20171127
  Serious: Yes (Life-Threatening, Hospitalization)
  Sender: FDA-Public Use
  Company Number: PHHY2017US128907

PATIENT
  Age: 18 Year
  Sex: Female

DRUGS (4)
  1. IRON [Suspect]
     Active Substance: IRON
     Indication: PRODUCT USED FOR UNKNOWN INDICATION
     Route: 065
  2. MANNITOL. [Concomitant]
     Active Substance: MANNITOL
     Indication: BRAIN OEDEMA
     Route: 065
  3. IBUPROFEN. [Suspect]
     Active Substance: IBUPROFEN
     Indication: PRODUCT USED FOR UNKNOWN INDICATION
     Route: 065
  4. MIDOL [Suspect]
     Active Substance: IBUPROFEN
     Indication: PRODUCT USED FOR UNKNOWN INDICATION
     Route: 065

REACTIONS (9)
  - Nausea [Unknown]
  - Decerebrate posture [Unknown]
  - Seizure [Unknown]
  - Acute hepatic failure [Unknown]
  - Intentional overdose [Unknown]
  - Hepatitis acute [Unknown]
  - Vomiting [Unknown]
  - Encephalopathy [Unknown]
  - Drug-induced liver injury [Unknown]
